FAERS Safety Report 10238492 (Version 3)
Quarter: 2015Q2

REPORT INFORMATION
  Report Type: Spontaneous
  Country: US (occurrence: US)
  Receive Date: 20140616
  Receipt Date: 20150524
  Transmission Date: 20150821
  Serious: No
  Sender: FDA-Public Use
  Company Number: US-JNJFOC-20140601164

PATIENT
  Sex: Female
  Weight: 81.65 kg

DRUGS (1)
  1. DURAGESIC [Suspect]
     Active Substance: FENTANYL
     Indication: PAIN
     Route: 062
     Dates: start: 2013

REACTIONS (5)
  - Product adhesion issue [Recovered/Resolved]
  - Hyperhidrosis [Unknown]
  - Drug dose omission [Unknown]
  - Product quality issue [Unknown]
  - Wrong technique in drug usage process [Unknown]
